FAERS Safety Report 5287071-8 (Version None)
Quarter: 2007Q2

REPORT INFORMATION
  Report Type: 
  Country: None (occurrence: None)
  Receive Date: 20070404
  Receipt Date: 20070326
  Transmission Date: 20071010
  Serious: Yes (Hospitalization)
  Sender: FDA-Public Use
  Company Number: SG-PFIZER INC-2006055997

PATIENT
  Sex: Female

DRUGS (4)
  1. SU-011,248 [Suspect]
     Indication: GASTROINTESTINAL STROMAL TUMOUR
     Route: 048
  2. LEVOTHYROXINE SODIUM [Concomitant]
     Route: 048
  3. CLEXANE [Concomitant]
     Route: 058
     Dates: start: 20060101
  4. ATENOLOL [Concomitant]
     Route: 048
     Dates: start: 20020101

REACTIONS (3)
  - CONFUSIONAL STATE [None]
  - INTESTINAL OBSTRUCTION [None]
  - URINARY TRACT INFECTION [None]
